FAERS Safety Report 5063396-6 (Version None)
Quarter: 2006Q3

REPORT INFORMATION
  Report Type: 
  Country: None (occurrence: None)
  Receive Date: 20060727
  Receipt Date: 20060615
  Transmission Date: 20061208
  Serious: Yes (Disabling)
  Sender: FDA-Public Use
  Company Number: 2006AP02795

PATIENT
  Age: 22683 Day
  Sex: Male

DRUGS (6)
  1. MARCAINE [Suspect]
     Indication: LOCAL ANAESTHESIA
     Route: 053
     Dates: start: 20010925, end: 20010925
  2. XYLOCAINE [Suspect]
     Indication: LOCAL ANAESTHESIA
     Route: 053
     Dates: start: 20010925, end: 20010925
  3. DIPRIVAN [Concomitant]
     Indication: MAINTENANCE OF ANAESTHESIA
     Route: 042
     Dates: start: 20010925, end: 20010925
  4. DORMICUM [Concomitant]
     Indication: ANAESTHESIA
     Route: 042
     Dates: start: 20010925, end: 20010925
  5. FENTANEST [Concomitant]
     Indication: ANAESTHESIA
     Route: 042
     Dates: start: 20010925, end: 20010925
  6. LAUGHING GAS [Concomitant]
     Indication: ANAESTHESIA
     Route: 055
     Dates: start: 20010925, end: 20010925

REACTIONS (3)
  - HYPOAESTHESIA [None]
  - PARALYSIS [None]
  - SPINAL CORD DISORDER [None]
